FAERS Safety Report 16142017 (Version 8)
Quarter: 2019Q4

REPORT INFORMATION
  Report Type: Report from Study
  Country: US (occurrence: US)
  Receive Date: 20190401
  Receipt Date: 20191111
  Transmission Date: 20200122
  Serious: Yes (Hospitalization, Other)
  Sender: FDA-Public Use
  Company Number: US-CLOVIS ONCOLOGY-CLO-2019-000369

PATIENT
  Age: 52 Year
  Sex: Female

DRUGS (4)
  1. RUBRACA [Suspect]
     Active Substance: RUCAPARIB CAMSYLATE
     Indication: OVARIAN CANCER
     Dosage: 600 MG, BID
     Route: 048
     Dates: start: 20190208, end: 20190326
  2. INSULIN [Concomitant]
     Active Substance: INSULIN NOS
     Indication: PRODUCT USED FOR UNKNOWN INDICATION
  3. RUBRACA [Suspect]
     Active Substance: RUCAPARIB CAMSYLATE
     Dosage: 300 MG, BID
     Route: 048
     Dates: start: 20190419
  4. RUBRACA [Suspect]
     Active Substance: RUCAPARIB CAMSYLATE
     Dosage: 300 MG, BID
     Route: 048
     Dates: start: 201905

REACTIONS (16)
  - Nausea [Recovering/Resolving]
  - Haemoglobin decreased [Not Recovered/Not Resolved]
  - Dysgeusia [Unknown]
  - Decreased appetite [Not Recovered/Not Resolved]
  - Confusional state [Unknown]
  - Pain [Not Recovered/Not Resolved]
  - Asthenia [Not Recovered/Not Resolved]
  - Bone marrow failure [Unknown]
  - Urinary tract infection [Unknown]
  - Abdominal pain upper [Unknown]
  - Fatigue [Not Recovered/Not Resolved]
  - Malaise [Unknown]
  - Memory impairment [Unknown]
  - Vomiting [Recovered/Resolved]
  - Fatigue [Unknown]
  - Bladder pain [Unknown]

NARRATIVE: CASE EVENT DATE: 2019
